FAERS Safety Report 20614610 (Version 10)
Quarter: 2022Q3

REPORT INFORMATION
  Report Type: Report from Study
  Country: US (occurrence: US)
  Receive Date: 20220321
  Receipt Date: 20220924
  Transmission Date: 20221026
  Serious: Yes (Other)
  Sender: FDA-Public Use
  Company Number: US-NOVARTISTESTPH-NVSC2022US062059

PATIENT
  Sex: Male

DRUGS (1)
  1. ENTRESTO [Suspect]
     Active Substance: SACUBITRIL\VALSARTAN
     Indication: Product used for unknown indication
     Dosage: 1 DOSAGE FORM, BID (24/26 MG)
     Route: 048
     Dates: start: 202201

REACTIONS (27)
  - Heart rate increased [Unknown]
  - Joint swelling [Recovering/Resolving]
  - Weight increased [Recovering/Resolving]
  - Hunger [Recovering/Resolving]
  - Blood glucose increased [Unknown]
  - Hypertension [Unknown]
  - Peripheral swelling [Recovering/Resolving]
  - Pain [Unknown]
  - Weight decreased [Unknown]
  - Dry mouth [Unknown]
  - Blood pressure fluctuation [Unknown]
  - Fluid intake reduced [Unknown]
  - Chest pain [Unknown]
  - Back pain [Recovering/Resolving]
  - Wrist fracture [Unknown]
  - Joint injury [Unknown]
  - Arthralgia [Recovering/Resolving]
  - Neck pain [Recovering/Resolving]
  - Decreased activity [Unknown]
  - Blood glucose decreased [Recovering/Resolving]
  - Asthenia [Recovering/Resolving]
  - Dizziness [Recovering/Resolving]
  - Fall [Recovering/Resolving]
  - Muscle tightness [Recovering/Resolving]
  - Pollakiuria [Recovering/Resolving]
  - Inappropriate schedule of product administration [Unknown]
  - Product dose omission issue [Recovering/Resolving]
